FAERS Safety Report 11510119 (Version 1)
Quarter: 2015Q3

REPORT INFORMATION
  Report Type: Spontaneous
  Country: US (occurrence: US)
  Receive Date: 20150915
  Receipt Date: 20150915
  Transmission Date: 20151125
  Serious: No
  Sender: FDA-Public Use
  Company Number: US-JNJFOC-20150617371

PATIENT
  Age: 59 Year
  Sex: Male

DRUGS (2)
  1. ACETAMINOPHEN (ADULT EXTRA STRENGTH GENERAL FORMULATION) [Suspect]
     Active Substance: ACETAMINOPHEN
     Route: 048
  2. ACETAMINOPHEN (ADULT EXTRA STRENGTH GENERAL FORMULATION) [Suspect]
     Active Substance: ACETAMINOPHEN
     Indication: MEDICATION ERROR
     Dosage: AT ONCE
     Route: 048
     Dates: start: 20150619

REACTIONS (1)
  - Extra dose administered [Unknown]
